FAERS Safety Report 16714751 (Version 1)
Quarter: 2019Q4

REPORT INFORMATION
  Report Type: Spontaneous
  Country: US (occurrence: US)
  Receive Date: 20190816
  Receipt Date: 20190816
  Transmission Date: 20200122
  Serious: Yes (Other)
  Sender: FDA-Public Use
  Company Number: None

PATIENT
  Age: 38 Year
  Sex: Male
  Weight: 102.06 kg

DRUGS (1)
  1. TESTOPEL [Suspect]
     Active Substance: TESTOSTERONE

REACTIONS (6)
  - Libido increased [None]
  - Emotional poverty [None]
  - Abnormal behaviour [None]
  - Anger [None]
  - Personality change [None]
  - Aggression [None]

NARRATIVE: CASE EVENT DATE: 20190808
